FAERS Safety Report 6386537-7 (Version None)
Quarter: 2009Q4

REPORT INFORMATION
  Report Type: 
  Country: None (occurrence: None)
  Receive Date: 20091002
  Receipt Date: 20090424
  Transmission Date: 20100525
  Serious: No
  Sender: FDA-Public Use
  Company Number: US-ASTRAZENECA-2009UW08628

PATIENT
  Age: 70 Year
  Sex: Female
  Weight: 86.2 kg

DRUGS (9)
  1. ARIMIDEX [Suspect]
     Indication: BREAST CANCER FEMALE
     Route: 048
     Dates: start: 20090301
  2. KEFLEX [Concomitant]
     Indication: INFECTION
  3. INDOMETHACIN [Concomitant]
     Indication: ARTHRITIS
  4. CLARINEX [Concomitant]
     Indication: MULTIPLE ALLERGIES
  5. ZESTORETIC [Concomitant]
     Indication: HYPERTENSION
  6. RANITIDINE [Concomitant]
     Indication: GASTROINTESTINAL DISORDER
  7. LEVOXYL [Concomitant]
     Indication: HYPOTHYROIDISM
  8. METFORMIN [Concomitant]
     Indication: DIABETES MELLITUS
  9. VITAMINS [Concomitant]
     Indication: SUPPLEMENTATION THERAPY

REACTIONS (9)
  - ALOPECIA [None]
  - ARTHRALGIA [None]
  - ASTHENIA [None]
  - BACK PAIN [None]
  - FATIGUE [None]
  - NIGHT SWEATS [None]
  - OEDEMA PERIPHERAL [None]
  - RASH PRURITIC [None]
  - RESTLESS LEGS SYNDROME [None]
